FAERS Safety Report 8177856-2 (Version None)
Quarter: 2012Q1

REPORT INFORMATION
  Report Type: 
  Country: None (occurrence: None)
  Receive Date: 20120126
  Receipt Date: 20111227
  Transmission Date: 20120608
  Serious: No
  Sender: FDA-Public Use
  Company Number: PHEH2011US012740

PATIENT
  Age: 83 Year
  Sex: Male
  Weight: 75.3 kg

DRUGS (1)
  1. AFINITOR [Suspect]
     Indication: ENDOCRINE NEOPLASM MALIGNANT
     Dosage: 10 MG DAILY, ORAL : 30 MG, QD, ORAL
     Route: 048
     Dates: start: 20111205, end: 20111224

REACTIONS (2)
  - DIARRHOEA [None]
  - DRUG ADMINISTRATION ERROR [None]
